FAERS Safety Report 4360205-5 (Version None)
Quarter: 2004Q2

REPORT INFORMATION
  Report Type: 
  Country: None (occurrence: None)
  Receive Date: 20040513
  Receipt Date: 20040504
  Transmission Date: 20050107
  Serious: Yes (Life-Threatening, Hospitalization)
  Sender: FDA-Public Use
  Company Number: US-JNJFOC-20040105597

PATIENT
  Age: 46 Year
  Sex: Female
  Weight: 90.7194 kg

DRUGS (2)
  1. TOPAMAX [Suspect]
     Indication: HEADACHE
     Dates: start: 20031201
  2. ADVIL (IBUPROFEN) UNSPECIFIED [Suspect]

REACTIONS (6)
  - CHEST DISCOMFORT [None]
  - DYSPNOEA [None]
  - NAUSEA [None]
  - NEPHRITIS INTERSTITIAL [None]
  - NEPHROTIC SYNDROME [None]
  - RENAL IMPAIRMENT [None]
